FAERS Safety Report 8977540 (Version 2)
Quarter: 2012Q4

REPORT INFORMATION
  Report Type: 
  Country: US (occurrence: US)
  Receive Date: 20121220
  Receipt Date: 20121227
  Transmission Date: 20130627
  Serious: Yes (Other)
  Sender: FDA-Public Use
  Company Number: US-PFIZER INC-2012323816

PATIENT
  Sex: Female

DRUGS (2)
  1. LYRICA [Suspect]
     Indication: FIBROMYALGIA
     Dosage: 75 mg, UNK
     Dates: start: 20121219
  2. LYRICA [Suspect]
     Dosage: 150 mg, UNK

REACTIONS (3)
  - Bedridden [Unknown]
  - Pain in extremity [Unknown]
  - Pain [Unknown]
